FAERS Safety Report 11986268 (Version 1)
Quarter: 2016Q1

REPORT INFORMATION
  Report Type: Spontaneous
  Country: IT (occurrence: IT)
  Receive Date: 20160202
  Receipt Date: 20160202
  Transmission Date: 20160526
  Serious: Yes (Hospitalization)
  Sender: FDA-Public Use
  Company Number: IT-ROCHE-1703206

PATIENT
  Age: 76 Year
  Sex: Male

DRUGS (1)
  1. ROCEFIN [Suspect]
     Active Substance: CEFTRIAXONE SODIUM
     Indication: ANTIBIOTIC THERAPY
     Dosage: ^2 G POWDER FOR SOLUTION FOR INFUSION^
     Route: 042
     Dates: start: 20160112, end: 20160112

REACTIONS (3)
  - Septic shock [Recovered/Resolved]
  - Dermatitis exfoliative [Recovered/Resolved]
  - Anaphylactic shock [Recovered/Resolved]

NARRATIVE: CASE EVENT DATE: 20160112
